FAERS Safety Report 19191559 (Version 3)
Quarter: 2021Q4

REPORT INFORMATION
  Report Type: Report from Study
  Country: None (occurrence: US)
  Receive Date: 20210429
  Receipt Date: 20211122
  Transmission Date: 20220303
  Serious: No
  Sender: FDA-Public Use
  Company Number: US-AKCEA THERAPEUTICS, INC.-2021IS001105

PATIENT
  Age: 68 Year
  Sex: Female

DRUGS (2)
  1. TEGSEDI [Suspect]
     Active Substance: INOTERSEN SODIUM
     Indication: Hereditary neuropathic amyloidosis
     Route: 058
     Dates: start: 20210204
  2. DEVICE [Suspect]
     Active Substance: DEVICE

REACTIONS (18)
  - Protein urine present [Unknown]
  - Nitrite urine present [Not Recovered/Not Resolved]
  - Bacterial test positive [Unknown]
  - Urine leukocyte esterase positive [Unknown]
  - Urinary sediment present [Not Recovered/Not Resolved]
  - Blood creatinine abnormal [Unknown]
  - Urine abnormality [Unknown]
  - Glomerular filtration rate decreased [Unknown]
  - Urinary occult blood positive [Unknown]
  - White blood cells urine positive [Unknown]
  - Red blood cells urine positive [Unknown]
  - Urinary casts [Unknown]
  - Platelet count decreased [Unknown]
  - Fungal test positive [Unknown]
  - Alanine aminotransferase abnormal [Unknown]
  - Crystal urine present [Unknown]
  - Laboratory test abnormal [Unknown]
  - Glucose urine present [Unknown]

NARRATIVE: CASE EVENT DATE: 20211108
